FAERS Safety Report 7308738-3 (Version None)
Quarter: 2011Q1

REPORT INFORMATION
  Report Type: 
  Country: None (occurrence: None)
  Receive Date: 20110223
  Receipt Date: 20110211
  Transmission Date: 20110831
  Serious: Yes (Other)
  Sender: FDA-Public Use
  Company Number: PHHY2011US11837

PATIENT

DRUGS (1)
  1. TEKTURNA [Suspect]

REACTIONS (2)
  - VISUAL FIELD DEFECT [None]
  - VISUAL IMPAIRMENT [None]
